FAERS Safety Report 24528950 (Version 1)
Quarter: 2024Q4

REPORT INFORMATION
  Report Type: Spontaneous
  Country: CA (occurrence: CA)
  Receive Date: 20241021
  Receipt Date: 20241021
  Transmission Date: 20250114
  Serious: Yes (Other)
  Sender: PFIZER
  Company Number: CA-PFIZER INC-202400277387

PATIENT
  Age: 62 Year
  Sex: Female

DRUGS (3)
  1. SULFASALAZINE [Suspect]
     Active Substance: SULFASALAZINE
     Indication: Crohn^s disease
     Dosage: 1 DF, DOSAGE NOT AVAILABLE
     Route: 065
  2. IRON [Concomitant]
     Active Substance: IRON
     Dosage: UNK
  3. PREDNISONE [Concomitant]
     Active Substance: PREDNISONE
     Dosage: UNK (DECREASING DOSE DURING FLARE UPS)

REACTIONS (5)
  - Pancreatitis acute [Unknown]
  - Intestinal perforation [Unknown]
  - Condition aggravated [Unknown]
  - Middle insomnia [Unknown]
  - Anal fissure [Unknown]
